FAERS Safety Report 22167772 (Version 1)
Quarter: 2023Q2

REPORT INFORMATION
  Report Type: Spontaneous
  Country: US (occurrence: US)
  Receive Date: 20230403
  Receipt Date: 20230403
  Transmission Date: 20230722
  Serious: Yes (Other)
  Sender: FDA-Public Use
  Company Number: US-UROGEN PHARMA LTD.-2023-UGN-000020

PATIENT

DRUGS (6)
  1. JELMYTO [Suspect]
     Active Substance: MITOMYCIN
     Indication: Transitional cell cancer of the renal pelvis and ureter
     Dosage: 7 MILLILITER (INSTILLATION)
  2. JELMYTO [Suspect]
     Active Substance: MITOMYCIN
     Dosage: 7 MILLILITER (INSTILLATION)
  3. JELMYTO [Suspect]
     Active Substance: MITOMYCIN
     Dosage: 7 MILLILITER (INSTILLATION)
  4. JELMYTO [Suspect]
     Active Substance: MITOMYCIN
     Dosage: 7 MILLILITER (INSTILLATION)
  5. JELMYTO [Suspect]
     Active Substance: MITOMYCIN
     Dosage: 7 MILLILITER (INSTILLATION)
  6. JELMYTO [Suspect]
     Active Substance: MITOMYCIN
     Dosage: 7 MILLILITER (INSTILLATION)

REACTIONS (1)
  - Pelvi-ureteric obstruction [Unknown]
